FAERS Safety Report 6331883-6 (Version None)
Quarter: 2009Q4

REPORT INFORMATION
  Report Type: 
  Country: None (occurrence: None)
  Receive Date: 20090826
  Receipt Date: 20090817
  Transmission Date: 20100525
  Serious: Yes (Hospitalization)
  Sender: FDA-Public Use
  Company Number: SPV1-2009-01683

PATIENT
  Age: 20 Month
  Sex: Male

DRUGS (5)
  1. VYVANSE [Suspect]
     Dosage: ONE DOSE, ORAL
     Route: 048
     Dates: start: 20090127, end: 20090127
  2. CLONIDINE [Suspect]
     Dosage: ONE DOSE, ORAL
     Route: 048
     Dates: start: 20090127, end: 20090127
  3. DEXEDRINE [Suspect]
     Dosage: ONE DOSE, ORAL
     Route: 048
     Dates: start: 20090127, end: 20090127
  4. BENZODIAZEPINE RELATED DRUGS [Suspect]
     Dosage: ONE DOSE, ORAL
     Route: 048
     Dates: start: 20090127, end: 20090127
  5. OTHER TYPE OF MISCELLANEOUS PRESCRIPTION OTC DRUG [Suspect]
     Dosage: ONE DOSE, ORAL
     Route: 048
     Dates: start: 20090127, end: 20090127

REACTIONS (3)
  - ACCIDENTAL DRUG INTAKE BY CHILD [None]
  - BRADYCARDIA [None]
  - DEPRESSED LEVEL OF CONSCIOUSNESS [None]
